FAERS Safety Report 5147372-0 (Version None)
Quarter: 2006Q4

REPORT INFORMATION
  Report Type: 
  Country: None (occurrence: None)
  Receive Date: 20061103
  Receipt Date: 20060809
  Transmission Date: 20070319
  Serious: Yes (Hospitalization, Other)
  Sender: FDA-Public Use
  Company Number: 2006065772

PATIENT
  Sex: Male
  Weight: 113 kg

DRUGS (8)
  1. CELEBREX [Suspect]
     Indication: ILL-DEFINED DISORDER
     Dosage: (200 MG)
     Dates: start: 20041005, end: 20040101
  2. AMARYL [Concomitant]
  3. LOTENSIN [Concomitant]
  4. VIOXX [Concomitant]
  5. FUROSEMIDE [Concomitant]
  6. VIAGRA [Concomitant]
  7. K-DUR 10 [Concomitant]
  8. CEPHALEXIN [Concomitant]

REACTIONS (16)
  - ACUTE MYOCARDIAL INFARCTION [None]
  - ANGINA UNSTABLE [None]
  - BONE DISORDER [None]
  - CARDIAC FAILURE CONGESTIVE [None]
  - CARDIAC PROCEDURE COMPLICATION [None]
  - CARPAL TUNNEL SYNDROME [None]
  - CATARACT [None]
  - CORONARY ARTERY DISEASE [None]
  - CORONARY ARTERY STENOSIS [None]
  - DIABETES MELLITUS INADEQUATE CONTROL [None]
  - DILATATION ATRIAL [None]
  - EPISTAXIS [None]
  - HAEMATURIA [None]
  - KNEE DEFORMITY [None]
  - MITRAL VALVE INCOMPETENCE [None]
  - SINUS TACHYCARDIA [None]
